FAERS Safety Report 5775067-9 (Version None)
Quarter: 2008Q2

REPORT INFORMATION
  Report Type: 
  Country: None (occurrence: None)
  Receive Date: 20080616
  Receipt Date: 20080616
  Transmission Date: 20081010
  Serious: No
  Sender: FDA-Public Use
  Company Number: None

PATIENT
  Age: 58 Year
  Sex: Female
  Weight: 71.2147 kg

DRUGS (1)
  1. ULTRAM ER [Suspect]
     Indication: HEADACHE
     Dosage: ONE TABLE DDAILY PO
     Route: 048
     Dates: start: 20080610, end: 20080610

REACTIONS (4)
  - DISORIENTATION [None]
  - NAUSEA [None]
  - SOMNOLENCE [None]
  - VOMITING [None]
